FAERS Safety Report 11150069 (Version 1)
Quarter: 2015Q2

REPORT INFORMATION
  Report Type: Spontaneous
  Country: US (occurrence: US)
  Receive Date: 20150529
  Receipt Date: 20150529
  Transmission Date: 20150821
  Serious: Yes (Death, Other)
  Sender: FDA-Public Use
  Company Number: US-ABBVIE-15P-163-1400220-00

PATIENT
  Sex: Male

DRUGS (1)
  1. SYNTHROID [Suspect]
     Active Substance: LEVOTHYROXINE SODIUM
     Indication: PRODUCT USED FOR UNKNOWN INDICATION
     Route: 065

REACTIONS (6)
  - Craniocerebral injury [Fatal]
  - Cardio-respiratory arrest [Fatal]
  - Hypertension [Fatal]
  - Dementia [Unknown]
  - Gastrointestinal tube insertion [Unknown]
  - Dementia Alzheimer^s type [Unknown]
